FAERS Safety Report 10215449 (Version 2)
Quarter: 2014Q2

REPORT INFORMATION
  Report Type: Report from Study
  Country: FR (occurrence: FR)
  Receive Date: 20140604
  Receipt Date: 20140610
  Transmission Date: 20141212
  Serious: Yes (Death)
  Sender: FDA-Public Use
  Company Number: FR-ROCHE-1409520

PATIENT
  Age: 51 Year
  Sex: Male
  Weight: 83 kg

DRUGS (19)
  1. RITUXIMAB [Suspect]
     Indication: CENTRAL NERVOUS SYSTEM LYMPHOMA
     Dosage: TOTAL DOSE WAS 3000 MG AND LAST DOSE PRIOR TO EVENT 750 MG
     Route: 042
     Dates: start: 20090812, end: 20091027
  2. METHOTREXATE [Suspect]
     Indication: CENTRAL NERVOUS SYSTEM LYMPHOMA
     Dosage: TOTAL DOSE WAS 6G AND LAST DOSE PRIOR TO EVENT 24G
     Route: 042
     Dates: start: 20090812, end: 20090924
  3. ETOPOSIDE [Suspect]
     Indication: CENTRAL NERVOUS SYSTEM LYMPHOMA
     Dosage: TOTAL DOSE WAS 400 MG AND LAST DOSE PRIOR TO EVENT 200 MG
     Route: 042
     Dates: start: 20090813, end: 20090908
  4. BICNU [Suspect]
     Indication: CENTRAL NERVOUS SYSTEM LYMPHOMA
     Dosage: TOTAL DOSE WAS 299.7 MG AND LAST DOSE PRIOR TO EVENT 149.85 MG
     Route: 042
     Dates: start: 20090814, end: 20090909
  5. ARACYTINE [Suspect]
     Indication: CENTRAL NERVOUS SYSTEM LYMPHOMA
     Dosage: TOTAL DOSE WAS 24 G AND LAST DOSE PRIOR TO EVENT 6 G
     Route: 042
     Dates: start: 20091006, end: 20091028
  6. THIOTEPA [Suspect]
     Indication: CENTRAL NERVOUS SYSTEM LYMPHOMA
     Dosage: TOTAL DOSE WAS 1500 MG AND LAST DOSE PRIOR TO EVENT 500 MG
     Route: 042
     Dates: start: 20091123, end: 20091125
  7. RIVOTRIL [Suspect]
     Indication: CENTRAL NERVOUS SYSTEM LYMPHOMA
     Dosage: 5 DROPS
     Route: 042
  8. BUSILVEX [Suspect]
     Indication: CENTRAL NERVOUS SYSTEM LYMPHOMA
     Dosage: LAST DOSE PRIOR TO EVENT 66 MG
     Route: 042
     Dates: start: 20091126, end: 20091128
  9. ENDOXAN [Suspect]
     Indication: CENTRAL NERVOUS SYSTEM LYMPHOMA
     Dosage: TOTAL DOSE WAS 9960 MG AND LAST DOSE PRIOR TO EVENT 3320 MG
     Route: 042
     Dates: start: 20091129, end: 20091130
  10. UROMITEXAN [Suspect]
     Indication: CENTRAL NERVOUS SYSTEM LYMPHOMA
     Route: 042
  11. PREDNISONE [Suspect]
     Indication: CENTRAL NERVOUS SYSTEM LYMPHOMA
     Route: 048
  12. OXYCONTIN [Concomitant]
     Route: 065
  13. OXYNORM [Concomitant]
     Dosage: 1-1-1
     Route: 065
  14. EFFERALGAN [Concomitant]
     Dosage: 2-2-2
     Route: 065
  15. NEURONTIN (FRANCE) [Concomitant]
     Dosage: 1-0-1
     Route: 065
  16. FORLAX [Concomitant]
     Dosage: 0-1-0
     Route: 065
  17. KEPPRA [Concomitant]
     Dosage: 1-1-1
     Route: 065
  18. LYRICA [Concomitant]
     Dosage: 1-0-1
     Route: 065
  19. LAROXYL [Concomitant]
     Dosage: TEN DROPS AT BEDTIME
     Route: 065

REACTIONS (1)
  - Hepatic cancer [Fatal]
